FAERS Safety Report 5335270-9 (Version None)
Quarter: 2007Q1

REPORT INFORMATION
  Report Type: 
  Country: None (occurrence: None)
  Receive Date: 20070308
  Receipt Date: 20070119
  Transmission Date: 20070707
  Serious: No
  Sender: FDA-Public Use
  Company Number: 2007-BP-00917BP

PATIENT
  Age: 68 Year
  Sex: Female

DRUGS (3)
  1. SPIRIVA [Suspect]
     Indication: LUNG DISORDER
     Dosage: 18 MCG (18 MCG, 1 IN 1 D), IH
     Route: 055
     Dates: start: 20060501
  2. NEXIUM [Concomitant]
  3. ZETIA [Concomitant]

REACTIONS (5)
  - DRY MOUTH [None]
  - DRY SKIN [None]
  - HAIR TEXTURE ABNORMAL [None]
  - MUSCLE SPASMS [None]
  - SCIATICA [None]
